FAERS Safety Report 11768623 (Version 3)
Quarter: 2016Q1

REPORT INFORMATION
  Report Type: Spontaneous
  Country: DE (occurrence: DE)
  Receive Date: 20151123
  Receipt Date: 20160104
  Transmission Date: 20160525
  Serious: Yes (Death, Life-Threatening, Hospitalization, Other)
  Sender: FDA-Public Use
  Company Number: DE-OTSUKA-2015_011604

PATIENT
  Age: 73 Year
  Sex: Female
  Weight: 103.4 kg

DRUGS (6)
  1. CEFTAZIDIME. [Concomitant]
     Active Substance: CEFTAZIDIME
     Indication: SEPSIS
     Dosage: 2000 MG, 3 IN 1 DAY
     Route: 042
     Dates: start: 20150925
  2. CIPROFLOXACIN. [Concomitant]
     Active Substance: CIPROFLOXACIN
     Indication: SEPSIS
     Dosage: 400 MG, 3 IN 1 DAY
     Route: 042
     Dates: start: 20150925, end: 20150930
  3. VORICONAZOLE. [Concomitant]
     Active Substance: VORICONAZOLE
     Indication: SEPSIS
     Dosage: 600 MG, 2 IN 1 DAY
     Route: 042
     Dates: start: 20150925
  4. ARTERENOL [Concomitant]
     Active Substance: NORADRENALINE HYDROCHLORIDE
     Indication: SEPSIS
     Dosage: UNK
     Route: 042
     Dates: start: 20150925
  5. DACOGEN [Suspect]
     Active Substance: DECITABINE
     Indication: ACUTE MYELOID LEUKAEMIA
     Dosage: 40 MG, 1 IN 1 DAY
     Route: 042
     Dates: start: 20150917
  6. LINEZOLID. [Concomitant]
     Active Substance: LINEZOLID
     Indication: SEPSIS
     Dosage: 600 MG, 3 IN 1 DAY
     Route: 042
     Dates: start: 20150925, end: 20150930

REACTIONS (1)
  - Acute respiratory failure [Fatal]

NARRATIVE: CASE EVENT DATE: 20150925
